FAERS Safety Report 8061587-3 (Version None)
Quarter: 2012Q1

REPORT INFORMATION
  Report Type: 
  Country: None (occurrence: None)
  Receive Date: 20120122
  Receipt Date: 20111011
  Transmission Date: 20120608
  Serious: Yes (Hospitalization, Other)
  Sender: FDA-Public Use
  Company Number: PHFR2011IE03729

PATIENT
  Sex: Male

DRUGS (6)
  1. ZOPICLONE [Concomitant]
     Indication: SLEEP DISORDER
     Dosage: 15 MG/DAY
     Route: 048
  2. LAMOTRIGINE [Suspect]
     Indication: SCHIZOPHRENIA
     Dosage: 300 MG/DAY
     Route: 048
  3. PREGABALIN [Concomitant]
     Indication: ANXIETY
     Dosage: 225 MG/DAY
     Route: 048
  4. CLOZARIL [Interacting]
     Dosage: 600 MG/DAY
     Route: 048
  5. CLOMIPRAMINE HCL [Concomitant]
     Indication: DEPRESSION
     Dosage: 150 MG/DAY
     Route: 048
  6. CLOZARIL [Interacting]
     Indication: SCHIZOPHRENIA
     Dosage: 700 MG/DAY
     Route: 048
     Dates: start: 19980521

REACTIONS (8)
  - TYPE 2 DIABETES MELLITUS [None]
  - OEDEMA PERIPHERAL [None]
  - MYOCLONUS [None]
  - ABDOMINAL DISTENSION [None]
  - CONSTIPATION [None]
  - CHRONIC INFLAMMATORY DEMYELINATING POLYRADICULONEUROPATHY [None]
  - DRUG INTERACTION [None]
  - MUSCULAR WEAKNESS [None]
